FAERS Safety Report 19243841 (Version 1)
Quarter: 2021Q2

REPORT INFORMATION
  Report Type: Spontaneous
  Country: US (occurrence: US)
  Receive Date: 20210511
  Receipt Date: 20210511
  Transmission Date: 20210717
  Serious: Yes (Other)
  Sender: FDA-Public Use
  Company Number: US-ASTRAZENECA-2021A394601

PATIENT
  Age: 73 Year
  Sex: Female
  Weight: 71.7 kg

DRUGS (3)
  1. BYETTA [Suspect]
     Active Substance: EXENATIDE
     Indication: TYPE 2 DIABETES MELLITUS
     Dosage: TWO TIMES A DAY
     Route: 058
  2. METFORMIN [Concomitant]
     Active Substance: METFORMIN HYDROCHLORIDE
     Indication: TYPE 2 DIABETES MELLITUS
     Route: 065
  3. BYDUREON [Suspect]
     Active Substance: EXENATIDE
     Indication: TYPE 2 DIABETES MELLITUS
     Route: 058

REACTIONS (8)
  - Blindness [Not Recovered/Not Resolved]
  - Impaired driving ability [Recovered/Resolved]
  - Cerebrovascular accident [Not Recovered/Not Resolved]
  - Injection site haemorrhage [Recovered/Resolved]
  - Cerebral thrombosis [Recovered/Resolved]
  - Arteriovenous malformation [Recovered/Resolved]
  - Injection site mass [Recovering/Resolving]
  - Balance disorder [Not Recovered/Not Resolved]

NARRATIVE: CASE EVENT DATE: 2019
